FAERS Safety Report 4376367-X (Version None)
Quarter: 2004Q2

REPORT INFORMATION
  Report Type: 
  Country: None (occurrence: None)
  Receive Date: 20040612
  Receipt Date: 20040602
  Transmission Date: 20050107
  Serious: Yes (Other)
  Sender: FDA-Public Use
  Company Number: US-JNJFOC-20040503733

PATIENT
  Age: 70 Year
  Sex: Male
  Weight: 81.65 kg

DRUGS (9)
  1. LEVAQUIN [Suspect]
     Indication: COUGH
     Route: 049
  2. LEVAQUIN [Suspect]
     Indication: SINUSITIS
     Route: 049
  3. INDERAL [Concomitant]
  4. ZOCOR [Concomitant]
  5. LASIX [Concomitant]
  6. PLAVIX [Concomitant]
  7. ASPIRIN [Concomitant]
  8. NITRO-DUR [Concomitant]
     Route: 062
  9. OMEPRAZOLE [Concomitant]

REACTIONS (1)
  - DIPLOPIA [None]
